FAERS Safety Report 4659590-6 (Version None)
Quarter: 2005Q2

REPORT INFORMATION
  Report Type: 
  Country: None (occurrence: None)
  Receive Date: 20050411
  Receipt Date: 20050112
  Transmission Date: 20051028
  Serious: Yes (Other)
  Sender: FDA-Public Use
  Company Number: 344230

PATIENT
  Age: 42 Year
  Sex: Male
  Weight: 109.3 kg

DRUGS (7)
  1. FUZEON [Suspect]
     Indication: HIV INFECTION
     Dosage: 90 MG 2 PER DAY SUBCUTANEOUS
     Route: 058
     Dates: start: 20030711
  2. FUZEON [Suspect]
  3. TENOFOVIR [Concomitant]
  4. KALETRA [Concomitant]
  5. NEURONTIN [Concomitant]
  6. DAPSONE [Concomitant]
  7. PNEUMONIA SHOT (PNEUMOCOCCAL VACCINE) [Concomitant]

REACTIONS (11)
  - COUGH [None]
  - DRUG ADMINISTRATION ERROR [None]
  - INJECTION SITE INDURATION [None]
  - INJECTION SITE IRRITATION [None]
  - INJECTION SITE MASS [None]
  - INJECTION SITE PAIN [None]
  - INJECTION SITE PRURITUS [None]
  - INJECTION SITE REACTION [None]
  - MEDICATION ERROR [None]
  - NASOPHARYNGITIS [None]
  - NODULE [None]
